FAERS Safety Report 5909224-5 (Version None)
Quarter: 2008Q4

REPORT INFORMATION
  Report Type: 
  Country: None (occurrence: None)
  Receive Date: 20081006
  Receipt Date: 20080930
  Transmission Date: 20090506
  Serious: Yes (Life-Threatening, Disabling)
  Sender: FDA-Public Use
  Company Number: PHHY2008CO21579

PATIENT
  Sex: Female

DRUGS (1)
  1. ACLASTA [Suspect]
     Indication: OSTEOPOROSIS
     Dosage: 1 INFUSION (5 MG/100 ML SOLUTION) ANNUAL
     Dates: start: 20071128

REACTIONS (3)
  - FALL [None]
  - HIP FRACTURE [None]
  - OSTEOSYNTHESIS [None]
